FAERS Safety Report 4569981-X (Version None)
Quarter: 2005Q1

REPORT INFORMATION
  Report Type: 
  Country: None (occurrence: None)
  Receive Date: 20050204
  Receipt Date: 20041222
  Transmission Date: 20050727
  Serious: No
  Sender: FDA-Public Use
  Company Number: PHBS2004JP17355

PATIENT
  Age: 72 Year
  Sex: Male

DRUGS (3)
  1. LAMISIL [Suspect]
     Indication: NAIL TINEA
     Dosage: 125 MG, QD
     Route: 048
     Dates: start: 20040901, end: 20041222
  2. NORVASC [Concomitant]
     Dosage: 5 MG/D
     Route: 048
  3. MYCOSPOR [Concomitant]
     Dosage: UNK, UNK
     Route: 061

REACTIONS (2)
  - OEDEMA PERIPHERAL [None]
  - PURPURA [None]
